FAERS Safety Report 9559711 (Version 1)
Quarter: 2013Q3

REPORT INFORMATION
  Report Type: Spontaneous
  Country: US (occurrence: None)
  Receive Date: 20130906
  Receipt Date: 20130906
  Transmission Date: 20140515
  Serious: Yes (Other)
  Sender: FDA-Public Use
  Company Number: 163-POMAL-13051328

PATIENT
  Age: 69 Year
  Sex: Male

DRUGS (7)
  1. POMALYST (POMALIDOMIDE) (2 MILLIGRAM, CAPSULES) [Suspect]
     Indication: PLASMA CELL MYELOMA
     Dosage: 2 MG, 21 IN 21 D, PO, CAPSULE
     Dates: start: 20130501
  2. VELCADE (BORTEZOMIB) [Concomitant]
  3. DEXAMETHASONE (DEXAMETHASONE) [Concomitant]
  4. ACYCLOVIR (ACICLOVIR) [Concomitant]
  5. ASA (ACETYLSALICYLIC ACID)I [Concomitant]
  6. COUMADIN (WARFARIN SODIUM) [Concomitant]
  7. BACTRIM (BACTRIM) [Concomitant]

REACTIONS (5)
  - Full blood count decreased [None]
  - Disorientation [None]
  - Dizziness [None]
  - Fatigue [None]
  - Nausea [None]
